FAERS Safety Report 5294634-2 (Version None)
Quarter: 2007Q2

REPORT INFORMATION
  Report Type: 
  Country: None (occurrence: None)
  Receive Date: 20070412
  Receipt Date: 20070404
  Transmission Date: 20071010
  Serious: Yes (Death, Life-Threatening)
  Sender: FDA-Public Use
  Company Number: FR-GLAXOSMITHKLINE-B0465425A

PATIENT
  Age: 86 Year
  Sex: Female
  Weight: 56 kg

DRUGS (6)
  1. AUGMENTIN '125' [Suspect]
     Dosage: 1G THREE TIMES PER DAY
     Route: 042
     Dates: start: 20070214, end: 20070216
  2. ACETYLSALICYLIC ACID SRT [Suspect]
     Indication: MYOCARDIAL INFARCTION
     Dosage: 250MG PER DAY
     Route: 042
     Dates: start: 20070214, end: 20070214
  3. SODIUM BICARBONATE [Suspect]
     Dosage: 6UNIT PER DAY
     Route: 055
     Dates: start: 20070214, end: 20070216
  4. HEPARIN SODIUM [Suspect]
     Dosage: 8.2U3 TWICE PER DAY
     Route: 042
     Dates: start: 20070215, end: 20070216
  5. CALCIPARINE [Suspect]
     Indication: MYOCARDIAL INFARCTION
     Dosage: 12.5U3 PER DAY
     Route: 058
     Dates: start: 20070214, end: 20070214
  6. BRICANYL [Suspect]
     Dosage: 6UNIT PER DAY
     Route: 055
     Dates: start: 20070214, end: 20070216

REACTIONS (6)
  - CARDIAC FAILURE [None]
  - CONDITION AGGRAVATED [None]
  - DEATH [None]
  - EJECTION FRACTION DECREASED [None]
  - MITRAL VALVE INCOMPETENCE [None]
  - PULMONARY HYPERTENSION [None]
